FAERS Safety Report 23251012 (Version 2)
Quarter: 2023Q4

REPORT INFORMATION
  Report Type: Report from Study
  Country: JP (occurrence: JP)
  Receive Date: 20231201
  Receipt Date: 20231219
  Transmission Date: 20240110
  Serious: Yes (Other)
  Sender: FDA-Public Use
  Company Number: JP-ASTELLAS-2023JP013230

PATIENT
  Age: 72 Year
  Sex: Male

DRUGS (1)
  1. ENFORTUMAB VEDOTIN [Suspect]
     Active Substance: ENFORTUMAB VEDOTIN
     Indication: Transitional cell carcinoma
     Dosage: 1.25 MG/KG, ONCE WEEKLY 3 CONSECUTIVE ADMINISTRATION AND REST ON THE 4TH WEEK
     Route: 065

REACTIONS (1)
  - Myelosuppression [Unknown]
